FAERS Safety Report 18851407 (Version 1)
Quarter: 2021Q1

REPORT INFORMATION
  Report Type: Spontaneous
  Country: US (occurrence: US)
  Receive Date: 20210204
  Receipt Date: 20210204
  Transmission Date: 20210420
  Serious: Yes (Death)
  Sender: FDA-Public Use
  Company Number: None

PATIENT
  Age: 78 Year
  Sex: Male

DRUGS (15)
  1. ATORVASTATIN [Concomitant]
     Active Substance: ATORVASTATIN
  2. LISINOPIRL [Concomitant]
  3. NOVOLIN NOS [Concomitant]
     Active Substance: INSULIN HUMAN
  4. FUROSEMIDE. [Concomitant]
     Active Substance: FUROSEMIDE
  5. ISOSORBIDE DINITRATE. [Concomitant]
     Active Substance: ISOSORBIDE DINITRATE
  6. JANURIA [Concomitant]
  7. VITAMIN D2 [Concomitant]
     Active Substance: ERGOCALCIFEROL
  8. ARA [Concomitant]
     Active Substance: DEXTRAN 70\GLYCERIN\HYPROMELLOSES
  9. CARVEDILOL. [Concomitant]
     Active Substance: CARVEDILOL
  10. AMLODIPINE [Concomitant]
     Active Substance: AMLODIPINE BESYLATE
  11. LANTUS [Concomitant]
     Active Substance: INSULIN GLARGINE
  12. RAYALDEE [Suspect]
     Active Substance: CALCIFEDIOL
     Indication: HYPERPARATHYROIDISM
     Route: 048
     Dates: start: 20201117
  13. CLOPIDOGREL [Concomitant]
     Active Substance: CLOPIDOGREL BISULFATE
  14. LEVOTHYROXINE. [Concomitant]
     Active Substance: LEVOTHYROXINE
  15. SPIRONOLACTONE. [Concomitant]
     Active Substance: SPIRONOLACTONE

REACTIONS (1)
  - Death [None]

NARRATIVE: CASE EVENT DATE: 20210204
